FAERS Safety Report 8252507-7 (Version None)
Quarter: 2012Q2

REPORT INFORMATION
  Report Type: 
  Country: None (occurrence: None)
  Receive Date: 20120402
  Receipt Date: 20111117
  Transmission Date: 20120825
  Serious: Yes (Other)
  Sender: FDA-Public Use
  Company Number: US-ABBOTT-11P-163-0869265-00

PATIENT
  Sex: Male
  Weight: 93.524 kg

DRUGS (1)
  1. ANDROGEL [Suspect]
     Indication: HYPOGONADISM
     Dates: start: 20110920, end: 20111004

REACTIONS (1)
  - CONVULSION [None]
